FAERS Safety Report 5304317-8 (Version None)
Quarter: 2007Q2

REPORT INFORMATION
  Report Type: 
  Country: None (occurrence: None)
  Receive Date: 20070423
  Receipt Date: 20070416
  Transmission Date: 20071010
  Serious: Yes (Other)
  Sender: FDA-Public Use
  Company Number: PHEH2007US05380

PATIENT

DRUGS (1)
  1. ZELNORM [Suspect]

REACTIONS (8)
  - AGEUSIA [None]
  - ANOSMIA [None]
  - CEREBROVASCULAR ACCIDENT [None]
  - EYE SWELLING [None]
  - FLUID RETENTION [None]
  - OEDEMA PERIPHERAL [None]
  - TONGUE DISORDER [None]
  - WEIGHT INCREASED [None]
